FAERS Safety Report 5742417-9 (Version None)
Quarter: 2008Q2

REPORT INFORMATION
  Report Type: 
  Country: None (occurrence: None)
  Receive Date: 20080519
  Receipt Date: 20080514
  Transmission Date: 20081010
  Serious: No
  Sender: FDA-Public Use
  Company Number: FR-JNJFOC-20080502501

PATIENT
  Sex: Female

DRUGS (2)
  1. REMINYL LP [Suspect]
     Route: 048
  2. REMINYL LP [Suspect]
     Indication: DRUG USE FOR UNKNOWN INDICATION
     Route: 048

REACTIONS (2)
  - DRUG INTOLERANCE [None]
  - DRUG PRESCRIBING ERROR [None]
